FAERS Safety Report 7151762-4 (Version None)
Quarter: 2010Q4

REPORT INFORMATION
  Report Type: 
  Country: None (occurrence: None)
  Receive Date: 20101210
  Receipt Date: 20101127
  Transmission Date: 20110411
  Serious: Yes (Other)
  Sender: FDA-Public Use
  Company Number: TR-BAYER-2010-001980

PATIENT
  Age: 36 Year
  Sex: Female

DRUGS (4)
  1. ASPIRIN [Suspect]
  2. MOBIC [Suspect]
     Indication: ALLERGY TEST
     Dosage: UNK
  3. METAMIZOL [Suspect]
  4. NIMESULIDE [Suspect]

REACTIONS (4)
  - ANGIOEDEMA [None]
  - HYPERSENSITIVITY [None]
  - PRURITUS [None]
  - URTICARIA [None]
